FAERS Safety Report 25700225 (Version 1)
Quarter: 2025Q3

REPORT INFORMATION
  Report Type: Spontaneous
  Country: US (occurrence: US)
  Receive Date: 20250819
  Receipt Date: 20250819
  Transmission Date: 20251021
  Serious: No
  Sender: ARCUTIS
  Company Number: US-ARCUTIS BIOTHERAPEUTICS INC-2025AER000477

PATIENT

DRUGS (2)
  1. ZORYVE [Suspect]
     Active Substance: ROFLUMILAST
     Indication: Eczema
     Dosage: UNK, QHS
     Route: 061
     Dates: start: 2024
  2. ZORYVE [Suspect]
     Active Substance: ROFLUMILAST
     Indication: Papule
     Dosage: UNK, QHS
     Route: 061
     Dates: start: 202507

REACTIONS (4)
  - Rash [Unknown]
  - Localised infection [Unknown]
  - Skin exfoliation [Unknown]
  - Off label use [Unknown]

NARRATIVE: CASE EVENT DATE: 20250701
